FAERS Safety Report 5620891-6 (Version None)
Quarter: 2008Q1

REPORT INFORMATION
  Report Type: 
  Country: None (occurrence: None)
  Receive Date: 20080208
  Receipt Date: 20080128
  Transmission Date: 20080703
  Serious: Yes (Other)
  Sender: FDA-Public Use
  Company Number: US-PFIZER INC-2008008331

PATIENT
  Sex: Female
  Weight: 90.909 kg

DRUGS (4)
  1. DILANTIN [Suspect]
     Indication: EPILEPSY
  2. LOPID [Concomitant]
  3. SYNTHROID [Concomitant]
  4. PHENOBARBITAL TAB [Concomitant]

REACTIONS (3)
  - IDIOPATHIC THROMBOCYTOPENIC PURPURA [None]
  - PLATELET COUNT DECREASED [None]
  - THROMBOTIC THROMBOCYTOPENIC PURPURA [None]
